FAERS Safety Report 12370133 (Version 3)
Quarter: 2017Q2

REPORT INFORMATION
  Report Type: Report from Study
  Country: DE (occurrence: DE)
  Receive Date: 20160516
  Receipt Date: 20170519
  Transmission Date: 20170830
  Serious: Yes (Other)
  Sender: FDA-Public Use
  Company Number: DE-CELGENEUS-DEU-2016020671

PATIENT

DRUGS (2)
  1. GEMCITABINE [Concomitant]
     Active Substance: GEMCITABINE\GEMCITABINE HYDROCHLORIDE
     Indication: PANCREATIC CARCINOMA METASTATIC
     Route: 065
  2. ABRAXANE [Suspect]
     Active Substance: PACLITAXEL
     Indication: PANCREATIC CARCINOMA METASTATIC
     Route: 041

REACTIONS (8)
  - Anaemia [Unknown]
  - Blood bilirubin decreased [Unknown]
  - Polyneuropathy [Unknown]
  - Adverse event [Unknown]
  - Leukopenia [Unknown]
  - Pyrexia [Unknown]
  - Nausea [Unknown]
  - Blood bilirubin increased [Unknown]
